FAERS Safety Report 18331477 (Version 2)
Quarter: 2020Q4

REPORT INFORMATION
  Report Type: Spontaneous
  Country: CA (occurrence: CA)
  Receive Date: 20200930
  Receipt Date: 20201009
  Transmission Date: 20210113
  Serious: Yes (Other)
  Sender: FDA-Public Use
  Company Number: CA-JNJFOC-20200944464

PATIENT
  Age: 21 Year
  Sex: Female

DRUGS (6)
  1. REMICADE [Suspect]
     Active Substance: INFLIXIMAB
     Indication: PRODUCT USED FOR UNKNOWN INDICATION
     Route: 042
  2. POLYSACCHARIDE-IRON COMPLEX [Concomitant]
     Active Substance: FERRIC POLYSACCHARIDE COMPLEX
  3. XELJANZ [Suspect]
     Active Substance: TOFACITINIB CITRATE
     Indication: COLITIS ULCERATIVE
     Route: 048
  4. FENTANYL. [Concomitant]
     Active Substance: FENTANYL
     Indication: SEDATION
     Route: 042
  5. HUMIRA [Suspect]
     Active Substance: ADALIMUMAB
     Indication: COLITIS ULCERATIVE
     Route: 058
  6. IRON [Concomitant]
     Active Substance: IRON

REACTIONS (15)
  - Abdominal pain [Unknown]
  - Tonsillitis [Unknown]
  - Rectal haemorrhage [Unknown]
  - Drug hypersensitivity [Unknown]
  - Flushing [Unknown]
  - Peritonsillar abscess [Unknown]
  - Colitis [Unknown]
  - Weight increased [Unknown]
  - Monocyte count increased [Unknown]
  - Cough [Unknown]
  - Drug ineffective [Unknown]
  - Lymphocyte count decreased [Unknown]
  - Platelet count increased [Unknown]
  - Dyspnoea [Unknown]
  - Anaemia [Unknown]
